FAERS Safety Report 6316039-5 (Version None)
Quarter: 2009Q3

REPORT INFORMATION
  Report Type: 
  Country: None (occurrence: None)
  Receive Date: 20090820
  Receipt Date: 20090813
  Transmission Date: 20100115
  Serious: Yes (Other)
  Sender: FDA-Public Use
  Company Number: US-AMGEN-QUU359145

PATIENT
  Sex: Male
  Weight: 64.9 kg

DRUGS (6)
  1. ARANESP [Suspect]
     Indication: MYELODYSPLASTIC SYNDROME
  2. VITAMIN B-12 [Concomitant]
  3. ALOXI [Concomitant]
  4. FLUDARA [Concomitant]
  5. ASTELIN [Concomitant]
  6. UNSPECIFIED MEDICATION [Concomitant]

REACTIONS (2)
  - HAEMATOCRIT DECREASED [None]
  - HAEMOGLOBIN DECREASED [None]
